FAERS Safety Report 6373148-2 (Version None)
Quarter: 2009Q3

REPORT INFORMATION
  Report Type: 
  Country: None (occurrence: None)
  Receive Date: 20090924
  Receipt Date: 20090504
  Transmission Date: 20100115
  Serious: Yes (Other)
  Sender: FDA-Public Use
  Company Number: US-ASTRAZENECA-2009UW02008

PATIENT
  Age: 34 Year
  Sex: Male

DRUGS (4)
  1. SEROQUEL [Suspect]
     Indication: SLEEP DISORDER
     Route: 048
     Dates: start: 20031201, end: 20090503
  2. SEROQUEL [Suspect]
     Indication: SCHIZOPHRENIA
     Route: 048
     Dates: start: 20031201, end: 20090503
  3. ZYPREXA [Concomitant]
     Dosage: 5 TO 10 MG
     Dates: start: 20040612, end: 20040912
  4. RISPERDAL [Concomitant]
     Dates: start: 20020315, end: 20061115

REACTIONS (2)
  - PANCREATITIS ACUTE [None]
  - TYPE 2 DIABETES MELLITUS [None]
